FAERS Safety Report 8519628-2 (Version None)
Quarter: 2012Q3

REPORT INFORMATION
  Report Type: 
  Country: None (occurrence: None)
  Receive Date: 20120718
  Receipt Date: 20120712
  Transmission Date: 20120928
  Serious: No
  Sender: FDA-Public Use
  Company Number: US-009507513-1207USA004550

PATIENT

DRUGS (1)
  1. EMEND [Suspect]
     Dosage: UNK
     Route: 042

REACTIONS (1)
  - ERYTHEMA [None]
